FAERS Safety Report 19978900 (Version 1)
Quarter: 2021Q4

REPORT INFORMATION
  Report Type: Spontaneous
  Country: US (occurrence: US)
  Receive Date: 20211021
  Receipt Date: 20211021
  Transmission Date: 20220303
  Serious: Yes (Disabling)
  Sender: FDA-Public Use
  Company Number: None

PATIENT
  Age: 44 Year
  Sex: Female
  Weight: 105 kg

DRUGS (2)
  1. IOPAMIDOL [Suspect]
     Active Substance: IOPAMIDOL
     Indication: Cellulitis
     Dosage: ?          OTHER FREQUENCY:ONCE;
     Route: 042
     Dates: start: 20210920, end: 20210920
  2. VANCOMYCIN [Concomitant]
     Active Substance: VANCOMYCIN
     Dates: start: 20210920, end: 20210923

REACTIONS (6)
  - Blood creatinine increased [None]
  - Acute kidney injury [None]
  - Tubulointerstitial nephritis [None]
  - Dyspnoea [None]
  - Chest pain [None]
  - Acute kidney injury [None]

NARRATIVE: CASE EVENT DATE: 20210920
